FAERS Safety Report 11707567 (Version 2)
Quarter: 2015Q4

REPORT INFORMATION
  Report Type: Spontaneous
  Country: US (occurrence: US)
  Receive Date: 20151104
  Receipt Date: 20151104
  Transmission Date: 20160304
  Serious: No
  Sender: FDA-Public Use
  Company Number: US-ELI_LILLY_AND_COMPANY-US201105000544

PATIENT
  Age: 92 Year
  Sex: Female

DRUGS (4)
  1. FORTEO [Suspect]
     Active Substance: TERIPARATIDE
     Dosage: 20 UG, QD
  2. DETROL LA [Concomitant]
     Active Substance: TOLTERODINE TARTRATE
  3. FORTEO [Suspect]
     Active Substance: TERIPARATIDE
     Indication: OSTEOPOROSIS
     Dosage: 20 UG, QD
     Dates: start: 201103
  4. FORTEO [Suspect]
     Active Substance: TERIPARATIDE
     Dosage: 20 UG, QD

REACTIONS (10)
  - Back pain [Unknown]
  - Defaecation urgency [Unknown]
  - Abdominal distension [Unknown]
  - Arthralgia [Unknown]
  - Intentional device misuse [Recovered/Resolved]
  - Pollakiuria [Unknown]
  - Bowel movement irregularity [Unknown]
  - Insomnia [Unknown]
  - Middle insomnia [Unknown]
  - Drug dose omission [Recovered/Resolved]

NARRATIVE: CASE EVENT DATE: 201104
